FAERS Safety Report 13737712 (Version 1)
Quarter: 2017Q3

REPORT INFORMATION
  Report Type: Report from Study
  Country: US (occurrence: US)
  Receive Date: 20170710
  Receipt Date: 20170710
  Transmission Date: 20171127
  Serious: No
  Sender: FDA-Public Use
  Company Number: US-SAOL THERAPEUTICS-2016SAO00493

PATIENT
  Sex: Female

DRUGS (4)
  1. COMPOUNDED BACLOFEN [Suspect]
     Active Substance: BACLOFEN
     Indication: POST LAMINECTOMY SYNDROME
     Dosage: 795.8 ?G, \DAY
     Route: 037
     Dates: end: 20121003
  2. MORPHINE [Suspect]
     Active Substance: MORPHINE
     Dosage: 4.714 MG, \DAY
     Route: 037
     Dates: end: 20121003
  3. MORPHINE [Suspect]
     Active Substance: MORPHINE
     Dosage: 4.954 MG, \DAY
     Route: 037
     Dates: start: 20121003
  4. COMPOUNDED BACLOFEN [Suspect]
     Active Substance: BACLOFEN
     Indication: PAIN
     Dosage: 836.2 ?G, \DAY
     Route: 037
     Dates: start: 20121003

REACTIONS (5)
  - Fall [Recovered/Resolved]
  - Somnolence [Recovered/Resolved]
  - Sleep apnoea syndrome [Recovered/Resolved]
  - Memory impairment [Recovered/Resolved]
  - Off label use [Unknown]
